FAERS Safety Report 15057738 (Version 1)
Quarter: 2018Q2

REPORT INFORMATION
  Report Type: Spontaneous
  Country: JP (occurrence: JP)
  Receive Date: 20180625
  Receipt Date: 20180625
  Transmission Date: 20180711
  Serious: Yes (Hospitalization)
  Sender: FDA-Public Use
  Company Number: JP-NAPPMUNDI-GBR-2018-0056914

PATIENT
  Age: 35 Year
  Sex: Female

DRUGS (4)
  1. PREDONINE [Concomitant]
     Active Substance: PREDNISOLONE
     Dosage: 10 MG, DAILY
     Dates: start: 20180605
  2. NORSPAN [Suspect]
     Active Substance: BUPRENORPHINE
     Dosage: 5 MCG, Q1H
     Route: 062
     Dates: start: 20180420, end: 20180427
  3. NORSPAN [Suspect]
     Active Substance: BUPRENORPHINE
     Indication: PAIN
     Dosage: 15 MCG, Q1H
     Route: 062
     Dates: start: 20180511, end: 20180521
  4. NORSPAN [Suspect]
     Active Substance: BUPRENORPHINE
     Dosage: 10 MCG, Q1H
     Route: 062
     Dates: start: 20180427, end: 20180511

REACTIONS (3)
  - Application site dermatitis [Recovering/Resolving]
  - Blister [Recovering/Resolving]
  - Application site dermatitis [Recovering/Resolving]

NARRATIVE: CASE EVENT DATE: 20180429
